FAERS Safety Report 11118241 (Version 1)
Quarter: 2015Q2

REPORT INFORMATION
  Report Type: Spontaneous
  Country: US (occurrence: None)
  Receive Date: 20150515
  Receipt Date: 20150515
  Transmission Date: 20150821
  Serious: Yes (Other)
  Sender: FDA-Public Use
  Company Number: None

PATIENT
  Age: 51 Year
  Sex: Male
  Weight: 83.92 kg

DRUGS (3)
  1. NASACORT AQ [Concomitant]
     Active Substance: TRIAMCINOLONE ACETONIDE
  2. CETIRIZINE [Concomitant]
     Active Substance: CETIRIZINE HYDROCHLORIDE
  3. RIVAROXABAN [Suspect]
     Active Substance: RIVAROXABAN

REACTIONS (1)
  - Breath odour [None]

NARRATIVE: CASE EVENT DATE: 20150514
